FAERS Safety Report 21628166 (Version 3)
Quarter: 2022Q4

REPORT INFORMATION
  Report Type: Report from Study
  Country: FR (occurrence: None)
  Receive Date: 20221122
  Receipt Date: 20221228
  Transmission Date: 20230113
  Serious: Yes (Other)
  Sender: FDA-Public Use
  Company Number: FR-Eisai Medical Research-EC-2022-128456

PATIENT
  Age: 82 Year
  Sex: Male
  Weight: 58 kg

DRUGS (12)
  1. LENVATINIB [Suspect]
     Active Substance: LENVATINIB
     Indication: Neoplasm
     Dosage: STARTING AT 20 MG, FLUCTUATED DOSAGE
     Route: 048
     Dates: start: 20220726, end: 20221114
  2. LENVATINIB [Suspect]
     Active Substance: LENVATINIB
     Route: 048
     Dates: start: 20221129
  3. PEMBROLIZUMAB [Suspect]
     Active Substance: PEMBROLIZUMAB
     Indication: Neoplasm
     Route: 041
     Dates: start: 20220726, end: 20221018
  4. PEMBROLIZUMAB [Suspect]
     Active Substance: PEMBROLIZUMAB
     Route: 041
     Dates: start: 20221129
  5. BELZUTIFAN [Suspect]
     Active Substance: BELZUTIFAN
     Indication: Neoplasm
     Dosage: STARTING AT 120 MG, FLUCTUATED DOSAGE
     Route: 048
     Dates: start: 20220726, end: 20221128
  6. BELZUTIFAN [Suspect]
     Active Substance: BELZUTIFAN
     Route: 048
     Dates: start: 20221129
  7. PENICILLIN V [Concomitant]
     Active Substance: PENICILLIN V
     Dates: start: 202106
  8. SOTALOL [Concomitant]
     Active Substance: SOTALOL
     Dates: start: 20220914
  9. ACETAMINOPHEN [Concomitant]
     Active Substance: ACETAMINOPHEN
     Dates: start: 202106
  10. ELIQUIS [Concomitant]
     Active Substance: APIXABAN
     Dates: start: 20221025, end: 20221203
  11. AMLODIPINE BESYLATE [Concomitant]
     Active Substance: AMLODIPINE BESYLATE
     Dates: start: 20220827
  12. CAPTOPRIL [Concomitant]
     Active Substance: CAPTOPRIL
     Dates: start: 20220901

REACTIONS (1)
  - Decreased appetite [Recovered/Resolved]

NARRATIVE: CASE EVENT DATE: 20221113
